FAERS Safety Report 4910162-5 (Version None)
Quarter: 2006Q1

REPORT INFORMATION
  Report Type: 
  Country: None (occurrence: None)
  Receive Date: 20060213
  Receipt Date: 20060106
  Transmission Date: 20060701
  Serious: Yes (Hospitalization)
  Sender: FDA-Public Use
  Company Number: US-MERCK-0601USA00816

PATIENT
  Age: 58 Year
  Sex: Male
  Weight: 125 kg

DRUGS (9)
  1. VIOXX [Suspect]
     Indication: SHOULDER PAIN
     Route: 048
     Dates: start: 20031201, end: 20041001
  2. VIOXX [Suspect]
     Indication: ARTHRITIS
     Route: 048
     Dates: start: 20031201, end: 20041001
  3. METOPROLOL [Concomitant]
     Route: 065
  4. PREVACID [Concomitant]
     Route: 065
  5. PIROXICAM [Concomitant]
     Route: 065
  6. HUMULIN [Concomitant]
     Route: 065
  7. NASONEX [Concomitant]
     Route: 065
  8. CELEBREX [Concomitant]
     Route: 065
  9. LIPITOR [Concomitant]
     Route: 065

REACTIONS (2)
  - CEREBROVASCULAR ACCIDENT [None]
  - HAND FRACTURE [None]
